FAERS Safety Report 8459257-2 (Version None)
Quarter: 2012Q2

REPORT INFORMATION
  Report Type: 
  Country: None (occurrence: None)
  Receive Date: 20120622
  Receipt Date: 20120620
  Transmission Date: 20120825
  Serious: Yes (Life-Threatening, Hospitalization)
  Sender: FDA-Public Use
  Company Number: DE-BAYER-2012-049969

PATIENT
  Age: 86 Year
  Sex: Female

DRUGS (3)
  1. LIPOTALON [Concomitant]
     Indication: ANALGESIC THERAPY
     Dosage: 1 ML, UNK
     Dates: start: 20120515
  2. GADAVIST [Suspect]
     Indication: COMPUTERISED TOMOGRAM
     Dosage: UNK UNK, ONCE
     Route: 042
     Dates: start: 20120515, end: 20120515
  3. BUPIVACAINE HCL [Concomitant]
     Indication: ANALGESIC THERAPY
     Dosage: 2 ML, UNK
     Dates: start: 20120515

REACTIONS (7)
  - FEELING HOT [None]
  - MOVEMENT DISORDER [None]
  - ENCEPHALOPATHY [None]
  - PAIN [None]
  - MYOCLONUS [None]
  - NYSTAGMUS [None]
  - DELIRIUM [None]
